FAERS Safety Report 6068784-7 (Version None)
Quarter: 2009Q1

REPORT INFORMATION
  Report Type: 
  Country: None (occurrence: None)
  Receive Date: 20090206
  Receipt Date: 20090129
  Transmission Date: 20090719
  Serious: Yes (Hospitalization, Other)
  Sender: FDA-Public Use
  Company Number: US-AVENTIS-200910794US

PATIENT
  Sex: Male

DRUGS (6)
  1. LANTUS [Suspect]
     Route: 058
  2. OPTICLIK (INSULIN INJECTION PEN) [Suspect]
  3. COUMADIN [Suspect]
     Dosage: DOSE: UNK
     Dates: end: 20081101
  4. FLAGYL [Suspect]
     Dosage: DOSE: UNK
  5. NOVOLOG [Concomitant]
     Dosage: DOSE: SLIDING SCALE
  6. ALOT [Concomitant]
     Dosage: DOSE: UNK

REACTIONS (8)
  - BLOOD GLUCOSE INCREASED [None]
  - CELLULITIS [None]
  - CLOSTRIDIAL INFECTION [None]
  - ERYTHEMA [None]
  - HYPOGLYCAEMIA [None]
  - MUSCULOSKELETAL STIFFNESS [None]
  - PNEUMONIA [None]
  - SUBDURAL HAEMATOMA [None]
